FAERS Safety Report 7286221-1 (Version None)
Quarter: 2011Q1

REPORT INFORMATION
  Report Type: 
  Country: None (occurrence: None)
  Receive Date: 20110210
  Receipt Date: 20110131
  Transmission Date: 20110831
  Serious: Yes (Other)
  Sender: FDA-Public Use
  Company Number: PHHY2011US02338

PATIENT
  Sex: Female

DRUGS (5)
  1. FAMPRIDINE [Concomitant]
     Dosage: UNK
  2. GILENYA [Suspect]
     Indication: RELAPSING-REMITTING MULTIPLE SCLEROSIS
     Dosage: 0.5 MG, DAILY
     Route: 048
     Dates: start: 20110103
  3. BACLOFEN [Concomitant]
     Dosage: UNK
  4. NEURONTIN [Concomitant]
     Dosage: UNK
  5. OXYCODONE HCL [Concomitant]
     Dosage: UNK

REACTIONS (1)
  - OEDEMA PERIPHERAL [None]
